FAERS Safety Report 8570225-2 (Version None)
Quarter: 2012Q3

REPORT INFORMATION
  Report Type: 
  Country: None (occurrence: None)
  Receive Date: 20120803
  Receipt Date: 20120725
  Transmission Date: 20120928
  Serious: Yes (Life-Threatening)
  Sender: FDA-Public Use
  Company Number: GB-FRI-1000037583

PATIENT
  Sex: Male

DRUGS (1)
  1. CITALOPRAM HYDROBROMIDE [Suspect]
     Route: 048

REACTIONS (3)
  - ABNORMAL BEHAVIOUR [None]
  - VIOLENCE-RELATED SYMPTOM [None]
  - THINKING ABNORMAL [None]
